FAERS Safety Report 7795858-2 (Version None)
Quarter: 2011Q4

REPORT INFORMATION
  Report Type: 
  Country: None (occurrence: None)
  Receive Date: 20111004
  Receipt Date: 20110921
  Transmission Date: 20120403
  Serious: Yes (Other)
  Sender: FDA-Public Use
  Company Number: US-JNJFOC-20110803830

PATIENT
  Age: 52 Year
  Sex: Female
  Weight: 66.23 kg

DRUGS (4)
  1. BENADRYL [Suspect]
     Indication: PRURITUS
     Dosage: 1 GEL CAPSULE AT P.M.
     Route: 048
     Dates: end: 20110728
  2. COUMADIN [Concomitant]
     Indication: ANTICOAGULANT THERAPY
     Route: 065
     Dates: start: 20040101
  3. BENADRYL [Suspect]
     Route: 048
  4. BENADRYL [Suspect]
     Indication: PRURITUS
     Dosage: ^WOULD RUB THE GEL WHEN DID NOT TAKE THE CAPSULE^.
     Route: 061

REACTIONS (9)
  - ASTHENIA [None]
  - LETHARGY [None]
  - OFF LABEL USE [None]
  - DRUG ADMINISTRATION ERROR [None]
  - SOMNOLENCE [None]
  - DIZZINESS [None]
  - DYSPNOEA [None]
  - HYPOTENSION [None]
  - NAUSEA [None]
